FAERS Safety Report 6045330-5 (Version None)
Quarter: 2009Q1

REPORT INFORMATION
  Report Type: 
  Country: None (occurrence: None)
  Receive Date: 20090121
  Receipt Date: 20090115
  Transmission Date: 20090719
  Serious: Yes (Death)
  Sender: FDA-Public Use
  Company Number: PHEH2009US00856

PATIENT
  Sex: Male

DRUGS (2)
  1. MYFORTIC [Suspect]
  2. ATIVAN [Concomitant]

REACTIONS (1)
  - DEATH [None]
